FAERS Safety Report 9941229 (Version 1)
Quarter: 2014Q1

REPORT INFORMATION
  Report Type: Report from Study
  Country: US (occurrence: US)
  Receive Date: 20140303
  Receipt Date: 20140303
  Transmission Date: 20141002
  Serious: No
  Sender: FDA-Public Use
  Company Number: US-ABBVIE-13P-163-1043162-00

PATIENT
  Age: 55 Year
  Sex: Female

DRUGS (8)
  1. HUMIRA [Suspect]
     Indication: COLITIS ULCERATIVE
     Dates: start: 20120802
  2. PREDNISONE [Concomitant]
     Indication: COLITIS
  3. COLAZAL [Concomitant]
     Indication: COLITIS
  4. TENORETIC [Concomitant]
     Indication: BLOOD PRESSURE INCREASED
  5. CHLOR KON [Concomitant]
     Indication: HYPOKALAEMIA
  6. GLIPIZIDE ER [Concomitant]
     Indication: BLOOD GLUCOSE INCREASED
  7. OMEPRAZOLE [Concomitant]
     Indication: DYSPEPSIA
  8. OMEPRAZOLE [Concomitant]
     Indication: DYSPEPSIA

REACTIONS (3)
  - Pyrexia [Not Recovered/Not Resolved]
  - Influenza [Not Recovered/Not Resolved]
  - Headache [Not Recovered/Not Resolved]
